FAERS Safety Report 9746027 (Version 2)
Quarter: 2013Q4

REPORT INFORMATION
  Report Type: Spontaneous
  Country: OM (occurrence: OM)
  Receive Date: 20131211
  Receipt Date: 20131223
  Transmission Date: 20140711
  Serious: Yes (Other)
  Sender: FDA-Public Use
  Company Number: ALCN2013OM006018

PATIENT
  Age: 72 Year
  Sex: Female
  Weight: 63 kg

DRUGS (1)
  1. BSS [Suspect]
     Indication: OFF LABEL USE
     Dosage: UNK UNK, ONCE/SINGLE
     Route: 031
     Dates: start: 20131125, end: 20131125

REACTIONS (2)
  - Corneal opacity [Not Recovered/Not Resolved]
  - Anterior chamber disorder [Not Recovered/Not Resolved]
